FAERS Safety Report 9667959 (Version 3)
Quarter: 2014Q1

REPORT INFORMATION
  Report Type: Spontaneous
  Country: CA (occurrence: CA)
  Receive Date: 20131104
  Receipt Date: 20140219
  Transmission Date: 20141002
  Serious: Yes (Other)
  Sender: FDA-Public Use
  Company Number: CA-GLAXOSMITHKLINE-A1047024A

PATIENT
  Sex: Female
  Weight: 52.7 kg

DRUGS (7)
  1. ADVAIR HFA [Suspect]
     Indication: ASTHMA
     Dosage: 1PUFF TWICE PER DAY
     Route: 055
     Dates: start: 2013
  2. VENTOLIN [Suspect]
     Indication: ASTHMA
     Route: 055
  3. ADVAIR HFA [Suspect]
     Indication: ASTHMA
     Dosage: 1PUFF TWICE PER DAY
     Route: 055
     Dates: start: 2013
  4. SYMBICORT [Suspect]
     Indication: ASTHMA
     Dosage: 1PUFF TWICE PER DAY
     Route: 065
     Dates: start: 201310
  5. ACTONEL [Concomitant]
     Indication: BONE DENSITY DECREASED
  6. TYLENOL [Concomitant]
     Indication: ARTHRITIS
  7. MULTIVITAMIN [Concomitant]

REACTIONS (6)
  - Pneumonia [Recovered/Resolved]
  - Asthma [Recovered/Resolved]
  - Drug ineffective [Unknown]
  - Dysphonia [Unknown]
  - Aphonia [Unknown]
  - Stress [Unknown]
